FAERS Safety Report 23542173 (Version 1)
Quarter: 2024Q1

REPORT INFORMATION
  Report Type: Other
  Country: US (occurrence: None)
  Receive Date: 20240220
  Receipt Date: 20240220
  Transmission Date: 20240410
  Serious: No
  Sender: FDA-Public Use
  Company Number: US-ROCHE-3379457

PATIENT
  Age: 74 Year
  Sex: Female

DRUGS (3)
  1. ENTRECTINIB [Suspect]
     Active Substance: ENTRECTINIB
     Indication: Medullary thyroid cancer
     Route: 065
  2. LAROTRECTINIB [Concomitant]
     Active Substance: LAROTRECTINIB
     Indication: Medullary thyroid cancer
     Dosage: LAROTRECTINIB WAS INITIATED AT A LOW DOSE OF 25MG ONCE DAILY, WITH TITRATION UP TO 50MG TWICE A DAY
  3. LAROTRECTINIB [Concomitant]
     Active Substance: LAROTRECTINIB

REACTIONS (5)
  - Constipation [Unknown]
  - Fluid retention [Unknown]
  - Syncope [Unknown]
  - Brain fog [Unknown]
  - Drug intolerance [Unknown]
